FAERS Safety Report 10210727 (Version 1)
Quarter: 2014Q2

REPORT INFORMATION
  Report Type: Spontaneous
  Country: US (occurrence: US)
  Receive Date: 20140602
  Receipt Date: 20140602
  Transmission Date: 20141212
  Serious: No
  Sender: FDA-Public Use
  Company Number: US-009507513-1405USA001345

PATIENT
  Age: 3 Year
  Sex: 0

DRUGS (2)
  1. CLARITIN CHEWABLE TABLETS [Suspect]
     Indication: PRODUCT USED FOR UNKNOWN INDICATION
     Dosage: 5 MG, ONCE
     Route: 048
     Dates: start: 20140428
  2. CLARITIN CHEWABLE TABLETS [Suspect]
     Dosage: 5 MG, ONCE
     Route: 048
     Dates: start: 20140427

REACTIONS (1)
  - Accidental overdose [Unknown]
